FAERS Safety Report 5936625-1 (Version None)
Quarter: 2008Q4

REPORT INFORMATION
  Report Type: 
  Country: None (occurrence: None)
  Receive Date: 20081030
  Receipt Date: 20081022
  Transmission Date: 20090506
  Serious: Yes (Hospitalization)
  Sender: FDA-Public Use
  Company Number: US-ABBOTT-08P-163-0483673-00

PATIENT
  Sex: Male
  Weight: 93.07 kg

DRUGS (5)
  1. VICODIN [Suspect]
     Indication: PROCEDURAL PAIN
     Route: 048
     Dates: start: 20080911, end: 20080916
  2. ENOXAPARIN SODIUM [Suspect]
     Indication: THROMBOSIS PROPHYLAXIS
     Dates: start: 20080914
  3. OXYCODONE HCL [Suspect]
     Indication: DRUG USE FOR UNKNOWN INDICATION
  4. FENTANYL [Suspect]
     Indication: DRUG USE FOR UNKNOWN INDICATION
  5. IBUPROFEN [Concomitant]
     Indication: DRUG USE FOR UNKNOWN INDICATION

REACTIONS (1)
  - PANIC ATTACK [None]
